FAERS Safety Report 9839525 (Version 2)
Quarter: 2014Q1

REPORT INFORMATION
  Report Type: Report from Study
  Country: CA (occurrence: CA)
  Receive Date: 20140124
  Receipt Date: 20140124
  Transmission Date: 20141002
  Serious: Yes (Other)
  Sender: FDA-Public Use
  Company Number: CA-ROCHE-1212296

PATIENT
  Sex: Female
  Weight: 78 kg

DRUGS (7)
  1. ACTEMRA [Suspect]
     Indication: RHEUMATOID ARTHRITIS
     Route: 042
     Dates: start: 20121107
  2. ACTEMRA [Suspect]
     Route: 042
     Dates: start: 20130404
  3. ACTEMRA [Suspect]
     Route: 042
     Dates: start: 20121205
  4. ACTEMRA [Suspect]
     Route: 065
     Dates: start: 20130507
  5. NORVASC [Concomitant]
     Route: 065
  6. HYDROCHLOROTHIAZIDE [Concomitant]
     Route: 065
  7. HUMIRA [Concomitant]
     Route: 065

REACTIONS (8)
  - Back pain [Not Recovered/Not Resolved]
  - Renal pain [Not Recovered/Not Resolved]
  - Blood pressure increased [Not Recovered/Not Resolved]
  - Drug ineffective [Unknown]
  - Weight increased [Not Recovered/Not Resolved]
  - Malaise [Unknown]
  - Nasopharyngitis [Unknown]
  - Dental operation [Unknown]
